FAERS Safety Report 5527745-4 (Version None)
Quarter: 2007Q4

REPORT INFORMATION
  Report Type: 
  Country: None (occurrence: None)
  Receive Date: 20071123
  Receipt Date: 20071114
  Transmission Date: 20080405
  Serious: Yes (Death, Other)
  Sender: FDA-Public Use
  Company Number: 430002M07ITA

PATIENT
  Age: 67 Year
  Sex: Female

DRUGS (4)
  1. NOVANTRONE [Suspect]
     Indication: SECONDARY PROGRESSIVE MULTIPLE SCLEROSIS
     Dosage: 100 MG, INTRAVENOUS (NOT OTHERWISE SPECIFIED)
     Route: 042
     Dates: start: 20060208, end: 20070330
  2. TRAMADOL HCL [Concomitant]
  3. RAMIPRIL /00885601/ [Concomitant]
  4. DULOXETINE [Concomitant]

REACTIONS (2)
  - COMPLETED SUICIDE [None]
  - LEUKOPENIA [None]
